FAERS Safety Report 12228262 (Version 2)
Quarter: 2016Q4

REPORT INFORMATION
  Report Type: Spontaneous
  Country: US (occurrence: US)
  Receive Date: 20160401
  Receipt Date: 20161014
  Transmission Date: 20170207
  Serious: Yes (Other)
  Sender: FDA-Public Use
  Company Number: US-TEVA-642957ACC

PATIENT
  Age: 26 Year
  Sex: Female
  Weight: 77.63 kg

DRUGS (1)
  1. PARAGARD T 380A [Suspect]
     Active Substance: COPPER
     Indication: CONTRACEPTION
     Dates: start: 20130615, end: 20160930

REACTIONS (24)
  - Skin irritation [Recovered/Resolved]
  - Menorrhagia [Not Recovered/Not Resolved]
  - Anxiety [Unknown]
  - Nightmare [Unknown]
  - Depression [Recovered/Resolved]
  - Blood iron decreased [Unknown]
  - Fluid retention [Recovered/Resolved]
  - Anger [Recovered/Resolved]
  - Weight increased [Not Recovered/Not Resolved]
  - Hypovitaminosis [Unknown]
  - Palpitations [Recovered/Resolved]
  - Vulvovaginal burning sensation [Recovered/Resolved]
  - Feeling abnormal [Recovered/Resolved]
  - Chromaturia [Unknown]
  - Muscle spasms [Unknown]
  - Thinking abnormal [Unknown]
  - Disturbance in attention [Recovered/Resolved]
  - Dyspnoea [Recovered/Resolved]
  - Pelvic inflammatory disease [Unknown]
  - Vaginal inflammation [Recovered/Resolved]
  - Acne [Unknown]
  - Increased appetite [Unknown]
  - Memory impairment [Recovered/Resolved]
  - Personality change due to a general medical condition [Recovered/Resolved]

NARRATIVE: CASE EVENT DATE: 201502
